FAERS Safety Report 13786454 (Version 1)
Quarter: 2017Q3

REPORT INFORMATION
  Report Type: Spontaneous
  Country: US (occurrence: US)
  Receive Date: 20170725
  Receipt Date: 20170725
  Transmission Date: 20171127
  Serious: Yes (Other)
  Sender: FDA-Public Use
  Company Number: None

PATIENT
  Age: 46 Year
  Sex: Female
  Weight: 69.75 kg

DRUGS (5)
  1. MULTIVITAMIN [Concomitant]
     Active Substance: VITAMINS
  2. CONCERTA [Concomitant]
     Active Substance: METHYLPHENIDATE HYDROCHLORIDE
  3. LAMOTRIGINE. [Suspect]
     Active Substance: LAMOTRIGINE
     Indication: EPILEPSY
     Dosage: ?          QUANTITY:1 TABLET(S); TWICE A DAY ORAL?
     Route: 048
  4. CEPHALECIN [Concomitant]
  5. XANAX [Concomitant]
     Active Substance: ALPRAZOLAM

REACTIONS (14)
  - Mood swings [None]
  - Depression [None]
  - Irritability [None]
  - Headache [None]
  - Pruritus [None]
  - Speech disorder [None]
  - Memory impairment [None]
  - Hyperhidrosis [None]
  - Hostility [None]
  - Hot flush [None]
  - Agitation [None]
  - Tearfulness [None]
  - Blindness [None]
  - Insomnia [None]

NARRATIVE: CASE EVENT DATE: 20170620
